FAERS Safety Report 6185793-8 (Version None)
Quarter: 2009Q2

REPORT INFORMATION
  Report Type: 
  Country: None (occurrence: None)
  Receive Date: 20090511
  Receipt Date: 20090501
  Transmission Date: 20091009
  Serious: Yes (Hospitalization)
  Sender: FDA-Public Use
  Company Number: A0716462A

PATIENT
  Age: 65 Year
  Sex: Female
  Weight: 99.5 kg

DRUGS (1)
  1. AVANDIA [Suspect]
     Indication: TYPE 2 DIABETES MELLITUS
     Dosage: 8MG PER DAY
     Route: 048
     Dates: start: 20000401, end: 20011101

REACTIONS (28)
  - ACUTE RESPIRATORY FAILURE [None]
  - AORTIC VALVE SCLEROSIS [None]
  - ATELECTASIS [None]
  - BUNDLE BRANCH BLOCK LEFT [None]
  - CARDIAC FAILURE CONGESTIVE [None]
  - COMA [None]
  - CORONARY ARTERY DISEASE [None]
  - CYANOSIS [None]
  - DILATATION VENTRICULAR [None]
  - ISCHAEMIC CARDIOMYOPATHY [None]
  - LEFT ATRIAL DILATATION [None]
  - LOSS OF CONSCIOUSNESS [None]
  - LUNG NEOPLASM [None]
  - METABOLIC ACIDOSIS [None]
  - MITRAL VALVE INCOMPETENCE [None]
  - MITRAL VALVE SCLEROSIS [None]
  - MYOCARDIAL ISCHAEMIA [None]
  - PERICARDIAL EFFUSION [None]
  - PLEURAL EFFUSION [None]
  - PULMONARY GRANULOMA [None]
  - PULMONARY HYPERTENSION [None]
  - PULMONARY OEDEMA [None]
  - PULMONARY VALVE INCOMPETENCE [None]
  - RESPIRATORY ARREST [None]
  - SCAN MYOCARDIAL PERFUSION ABNORMAL [None]
  - SINUS TACHYCARDIA [None]
  - TRICUSPID VALVE INCOMPETENCE [None]
  - VENTRICULAR HYPOKINESIA [None]
